FAERS Safety Report 12415553 (Version 9)
Quarter: 2018Q4

REPORT INFORMATION
  Report Type: Spontaneous
  Country: US (occurrence: US)
  Receive Date: 20160530
  Receipt Date: 20181113
  Transmission Date: 20190204
  Serious: Yes (Other)
  Sender: FDA-Public Use
  Company Number: US-PFIZER INC-2016277780

PATIENT
  Age: 63 Year
  Sex: Male
  Weight: 91 kg

DRUGS (46)
  1. LYRICA [Suspect]
     Active Substance: PREGABALIN
     Indication: NEUROPATHY PERIPHERAL
     Dosage: 100 MG, 2X/DAY
     Route: 048
  2. FOLBEE PLUS [Concomitant]
     Dosage: 1 DF, 2X/DAY(ASCORBIC ACID-2.5 MG VITAMIN B COMPLEX-25 MG)
     Route: 048
  3. HYDROCODONE/ACETAMINOPHEN [Concomitant]
     Active Substance: ACETAMINOPHEN\HYDROCODONE
     Dosage: 1 DF, 4X/DAY(HYDROCODONE 10 MG-ACETAMINOPHEN 300 MG , TAKE 1 TABLET(S) EVERY 6 HOURS BY ORAL ROUTE )
     Route: 048
  4. LATANOPROST. [Concomitant]
     Active Substance: LATANOPROST
     Dosage: 0.005 %, UNK
  5. LISINOPRIL. [Concomitant]
     Active Substance: LISINOPRIL
     Dosage: 20 MG, 1X/DAY(TAKE 1 TABLETS EVERY DAY BY ORAL ROUTE FOR 90 DAYS)
     Route: 048
  6. PILOCARPINE. [Concomitant]
     Active Substance: PILOCARPINE
     Dosage: 5 MG, 3X/DAY(TAKE 1 TABLET(S) 3 TIMES A DAY BY ORAL ROUTE)
     Route: 048
  7. ALPRAZOLAM. [Concomitant]
     Active Substance: ALPRAZOLAM
     Indication: ANXIETY
     Dosage: 1 MG, 3X/DAY
     Route: 048
     Dates: start: 19971231
  8. DOXYCYCLINE HYCLATE. [Concomitant]
     Active Substance: DOXYCYCLINE HYCLATE
     Dosage: 100 MG, UNK
  9. FLUTICASONE. [Concomitant]
     Active Substance: FLUTICASONE
     Dosage: 50 UG, UNK
     Route: 045
  10. METFORMIN [Concomitant]
     Active Substance: METFORMIN HYDROCHLORIDE
     Dosage: 1000 MG, 1X/DAY((TAKE 1 TABLET(S) EVERY DAY BY ORAL ROUTE FOR 90 DAYS)
     Route: 048
  11. OMEPRAZOLE. [Concomitant]
     Active Substance: OMEPRAZOLE
     Dosage: 20 MG, DAILY
     Route: 048
  12. RANITIDINE. [Concomitant]
     Active Substance: RANITIDINE
     Dosage: 300 MG, 1X/DAY
     Route: 048
  13. ALPRAZOLAM. [Concomitant]
     Active Substance: ALPRAZOLAM
     Dosage: 2 MG, DAILY
     Route: 048
  14. AZITHROMYCIN ANHYDROUS. [Concomitant]
     Active Substance: AZITHROMYCIN ANHYDROUS
     Dosage: 500 MG, 1X/DAY (ONCE DAILY FOR 1 DAY)
     Route: 048
  15. LEVOFLOXACIN. [Concomitant]
     Active Substance: LEVOFLOXACIN
     Dosage: 500 MG, UNK
  16. PREDNISONE. [Concomitant]
     Active Substance: PREDNISONE
     Dosage: 20 MG, UNK
  17. PROAIR HFA [Concomitant]
     Active Substance: ALBUTEROL SULFATE
     Dosage: 90 UG, UNK
  18. FLUARIX QUADRIVALENT [Concomitant]
     Dosage: 60 UG, UNK (15MCG X 4)/0.5 ML
     Route: 030
  19. DALIRESP [Concomitant]
     Active Substance: ROFLUMILAST
     Dosage: 500 UG, UNK
  20. LYRICA [Suspect]
     Active Substance: PREGABALIN
     Dosage: 200 MG, DAILY
     Route: 048
  21. LYRICA [Suspect]
     Active Substance: PREGABALIN
     Dosage: 100 MG, 3X/DAY
     Route: 048
  22. AZITHROMYCIN ANHYDROUS. [Concomitant]
     Active Substance: AZITHROMYCIN ANHYDROUS
     Dosage: 250 MG, 1X/DAY (DAILY FOR 4 DAYS)
     Route: 048
  23. HYDROCODONE/ACETAMINOPHEN [Concomitant]
     Active Substance: ACETAMINOPHEN\HYDROCODONE
     Dosage: HYDROCODONE 5 MG-ACETAMINOPHEN 325 MG TABLET
  24. LINZESS [Concomitant]
     Active Substance: LINACLOTIDE
     Dosage: 145 UG, UNK
  25. XANAX [Concomitant]
     Active Substance: ALPRAZOLAM
     Indication: ANXIETY
     Dosage: 3 MG, DAILY(3MG, 1 TABLET BY MOUTH DAILY)
     Route: 048
     Dates: start: 1997
  26. ALPRAZOLAM. [Concomitant]
     Active Substance: ALPRAZOLAM
     Dosage: 2.5 MG, DAILY
     Route: 048
  27. CIPROFLOXACIN. [Concomitant]
     Active Substance: CIPROFLOXACIN
     Dosage: 500 MG, 2X/DAY( (TAKE 1 TABLET EVERY 12 HOURS BY ORAL ROUTE FOR 10 DAYS)
     Route: 048
  28. DULOXETINE. [Concomitant]
     Active Substance: DULOXETINE
     Dosage: 30 MG, 1X/DAY(TAKE 1 CAPSULE(S) EVERY DAY BY ORAL ROUTE FOR 90 DAYS)
     Route: 048
  29. DULOXETINE. [Concomitant]
     Active Substance: DULOXETINE
     Dosage: 60 MG, 1X/DAY((1 CAPSULE(S) EVERY DAY BY ORAL ROUTE FOR 90 DAYS)
     Route: 048
  30. AMOXICILLIN AND CLAVULANATE POTASSIUM [Concomitant]
     Active Substance: AMOXICILLIN\CLAVULANATE POTASSIUM
     Dosage: AMOXICILLIN TRIHYDRATE 875 MG, CLAVULANATE POTASSIUM 125 MG
  31. NYSTATIN. [Concomitant]
     Active Substance: NYSTATIN
     Dosage: UNK (100,000 UNIT/GRAM )
     Route: 061
  32. TRAMADOL. [Concomitant]
     Active Substance: TRAMADOL
     Dosage: 50 MG, UNK
  33. CYMBALTA [Concomitant]
     Active Substance: DULOXETINE HYDROCHLORIDE
     Dosage: UNK
     Dates: start: 201407
  34. BREO ELLIPTA [Concomitant]
     Active Substance: FLUTICASONE FUROATE\VILANTEROL TRIFENATATE
     Dosage: 100 MCG-25 MCG/DOSE
  35. MORPHINE [Concomitant]
     Active Substance: MORPHINE
     Dosage: 15 MG, UNK
  36. OMEPRAZOLE. [Concomitant]
     Active Substance: OMEPRAZOLE
     Dosage: 40 MG, 1X/DAY(TAKE 1 CAPSULE(S) EVERY DAY BY ORAL ROUTE FOR 90 DAYS)
     Route: 048
  37. LYRICA [Suspect]
     Active Substance: PREGABALIN
     Dosage: UNK
     Dates: end: 20180722
  38. IPRATROPIUM BROMIDE. [Concomitant]
     Active Substance: IPRATROPIUM BROMIDE
     Dosage: 0.03 %, UNK
     Route: 045
  39. INFLUENZA [Concomitant]
     Active Substance: INFLUENZA VIRUS VACCINE
     Dosage: UNK
     Route: 030
     Dates: start: 20150930
  40. PNEUMOCOCCAL CONJUGATE PCV [Concomitant]
     Route: 030
     Dates: start: 20150930
  41. LYRICA [Suspect]
     Active Substance: PREGABALIN
     Indication: DIABETIC NEUROPATHY
     Dosage: 200 MG, 2X/DAY
     Route: 048
     Dates: start: 2006
  42. DESMOPRESSIN [Concomitant]
     Active Substance: DESMOPRESSIN
     Dosage: 0.1 MG, DAILY(TAKE 1 TABLET EVERY DAY BY ORAL ROUTE AT BEDTIME)
     Route: 048
  43. DOXYCYCLINE HYCLATE. [Concomitant]
     Active Substance: DOXYCYCLINE HYCLATE
     Dosage: 100 MG, UNK
  44. KETOPROFEN. [Concomitant]
     Active Substance: KETOPROFEN
     Dosage: 200 MG, 1X/DAY
  45. DIPHTHERIA TETANUS PERTUSSIS [Concomitant]
     Dosage: UNK
     Route: 030
     Dates: start: 20150930
  46. VARICELLA ZOSTER VACCINE [Concomitant]
     Active Substance: VARICELLA-ZOSTER VIRUS STRAIN OKA/MERCK LIVE ANTIGEN
     Dosage: 0.65 ML
     Route: 058
     Dates: start: 20150930

REACTIONS (21)
  - Condition aggravated [Unknown]
  - Bronchitis [Recovered/Resolved]
  - Chronic obstructive pulmonary disease [Unknown]
  - Diarrhoea [Unknown]
  - Insomnia [Unknown]
  - Hypertension [Unknown]
  - Gastrooesophageal reflux disease [Unknown]
  - Urinary incontinence [Unknown]
  - Hyponatraemia [Unknown]
  - Diabetes mellitus [Unknown]
  - Depression [Unknown]
  - Anxiety [Unknown]
  - Angina bullosa haemorrhagica [Unknown]
  - Drug dependence [Unknown]
  - Withdrawal syndrome [Not Recovered/Not Resolved]
  - Chest injury [Unknown]
  - Neuropathy peripheral [Unknown]
  - Overdose [Unknown]
  - Cough [Recovered/Resolved]
  - Hypercholesterolaemia [Unknown]
  - Nausea [Unknown]

NARRATIVE: CASE EVENT DATE: 20160518
